FAERS Safety Report 10547814 (Version 1)
Quarter: 2014Q4

REPORT INFORMATION
  Report Type: Spontaneous
  Country: US (occurrence: None)
  Receive Date: 20141027
  Receipt Date: 20141027
  Transmission Date: 20150529
  Serious: Yes (Life-Threatening)
  Sender: FDA-Public Use
  Company Number: None

PATIENT
  Age: 48 Year
  Sex: Female
  Weight: 65.32 kg

DRUGS (1)
  1. AMOX TR-K CLV [Suspect]
     Active Substance: AMOXICILLIN\CLAVULANATE POTASSIUM
     Indication: INFECTION
     Dosage: 1 TAB
     Route: 048
     Dates: start: 20141013, end: 20141023

REACTIONS (7)
  - Anger [None]
  - Emotional disorder [None]
  - Paranoia [None]
  - Thinking abnormal [None]
  - Postoperative wound infection [None]
  - Depression [None]
  - Suicidal ideation [None]

NARRATIVE: CASE EVENT DATE: 20141023
